FAERS Safety Report 8543361-4 (Version None)
Quarter: 2012Q3

REPORT INFORMATION
  Report Type: 
  Country: None (occurrence: None)
  Receive Date: 20120719
  Receipt Date: 20120719
  Transmission Date: 20120928
  Serious: Yes (Hospitalization)
  Sender: FDA-Public Use
  Company Number: None

PATIENT
  Age: 6 Year
  Sex: Male
  Weight: 22.7 kg

DRUGS (2)
  1. CARBAMAZEPINE [Suspect]
     Indication: ATTENTION DEFICIT/HYPERACTIVITY DISORDER
     Dosage: 100 MG Q8H PO
     Route: 048
     Dates: start: 20120702, end: 20120716
  2. METADATE CD [Concomitant]

REACTIONS (1)
  - STEVENS-JOHNSON SYNDROME [None]
